FAERS Safety Report 5084445-5 (Version None)
Quarter: 2006Q3

REPORT INFORMATION
  Report Type: 
  Country: None (occurrence: None)
  Receive Date: 20060821
  Receipt Date: 20060727
  Transmission Date: 20061208
  Serious: Yes (Congenital Anomaly)
  Sender: FDA-Public Use
  Company Number: GB-GLAXOSMITHKLINE-B0434670A

PATIENT

DRUGS (3)
  1. COMBIVIR [Suspect]
     Route: 048
     Dates: start: 20050912, end: 20051225
  2. SAQUINAVIR [Suspect]
     Dosage: 2000MG PER DAY
     Route: 048
     Dates: start: 20050912, end: 20051225
  3. RITONAVIR [Suspect]
     Dosage: 200MG PER DAY
     Route: 065
     Dates: start: 20050912, end: 20051225

REACTIONS (1)
  - CLEFT PALATE [None]
